FAERS Safety Report 11453153 (Version 1)
Quarter: 2015Q3

REPORT INFORMATION
  Report Type: Spontaneous
  Country: US (occurrence: US)
  Receive Date: 20150831
  Receipt Date: 20150831
  Transmission Date: 20151125
  Serious: No
  Sender: FDA-Public Use
  Company Number: US-ELI_LILLY_AND_COMPANY-US200909002054

PATIENT
  Sex: Male

DRUGS (1)
  1. CYMBALTA [Suspect]
     Active Substance: DULOXETINE HYDROCHLORIDE
     Indication: ANXIETY
     Dosage: 30 MG, 2/D
     Dates: start: 200903, end: 200909

REACTIONS (11)
  - Suicidal ideation [Recovered/Resolved]
  - Dizziness [Recovered/Resolved]
  - Panic attack [Recovered/Resolved]
  - Dry mouth [Recovered/Resolved]
  - Irritability [Recovered/Resolved]
  - Constipation [Recovered/Resolved]
  - Mood altered [Recovered/Resolved]
  - Aggression [Recovered/Resolved]
  - Headache [Not Recovered/Not Resolved]
  - Chromaturia [Recovered/Resolved]
  - Restlessness [Recovered/Resolved]

NARRATIVE: CASE EVENT DATE: 2009
